FAERS Safety Report 18052078 (Version 1)
Quarter: 2020Q3

REPORT INFORMATION
  Report Type: Report from Study
  Country: US (occurrence: US)
  Receive Date: 20200721
  Receipt Date: 20200721
  Transmission Date: 20201103
  Serious: Yes (Hospitalization)
  Sender: FDA-Public Use
  Company Number: US-INCYTE CORPORATION-2020IN000939

PATIENT

DRUGS (6)
  1. INCB054828 [Suspect]
     Active Substance: PEMIGATINIB
     Indication: NEOPLASM
     Dosage: 13.5 MILLIGRAM, QD
     Route: 048
     Dates: start: 20190904, end: 20200115
  2. ACYCLOVIR SODIUM. [Concomitant]
     Active Substance: ACYCLOVIR SODIUM
     Indication: ANTIVIRAL PROPHYLAXIS
     Dosage: 400 MILLIGRAM, BID
     Dates: start: 2015
  3. CHOLECALCIFEROL [Concomitant]
     Active Substance: CHOLECALCIFEROL
     Indication: VITAMIN D DEFICIENCY
     Dosage: 2000 UNITS, QD
     Dates: start: 20190811
  4. DULOXETINE. [Concomitant]
     Active Substance: DULOXETINE
     Indication: NEUROPATHY PERIPHERAL
     Dosage: 20 MILLIGRAM, QD
     Dates: start: 20190810
  5. GLIMEPIRIDE. [Concomitant]
     Active Substance: GLIMEPIRIDE
     Indication: DIABETES MELLITUS
     Dosage: 1?4 MILLIGRAM, QD
     Dates: start: 20190815
  6. ALLOPURINOL. [Concomitant]
     Active Substance: ALLOPURINOL
     Indication: PROPHYLAXIS
     Dosage: 300 MILLIGRAM, QD
     Dates: start: 20190809

REACTIONS (1)
  - Calciphylaxis [Recovering/Resolving]

NARRATIVE: CASE EVENT DATE: 20200116
